FAERS Safety Report 8761088 (Version 1)
Quarter: 2012Q4

REPORT INFORMATION
  Report Type: 
  Country: BR (occurrence: BR)
  Receive Date: 20120830
  Receipt Date: 20120830
  Transmission Date: 20130627
  Serious: Yes (Other)
  Sender: FDA-Public Use
  Company Number: BR-ASTRAZENECA-2012SE65116

PATIENT
  Age: 54 Year
  Sex: Female

DRUGS (3)
  1. NEXIUM [Suspect]
     Indication: GASTRITIS
     Route: 048
  2. NEXIUM [Suspect]
     Indication: HIATUS HERNIA
     Route: 048
  3. HIGROTON [Concomitant]
     Indication: HYPERTENSION
     Route: 048

REACTIONS (2)
  - Gastric polyps [Not Recovered/Not Resolved]
  - Amnesia [Unknown]
